FAERS Safety Report 6880801-0 (Version None)
Quarter: 2010Q3

REPORT INFORMATION
  Report Type: 
  Country: None (occurrence: None)
  Receive Date: 20100728
  Receipt Date: 20100719
  Transmission Date: 20110219
  Serious: Yes (Other)
  Sender: FDA-Public Use
  Company Number: BR-BRISTOL-MYERS SQUIBB COMPANY-15205404

PATIENT

DRUGS (4)
  1. ATAZANAVIR [Suspect]
  2. RITONAVIR [Suspect]
  3. TENOFOVIR [Suspect]
  4. LAMIVUDINE [Suspect]

REACTIONS (1)
  - GASTRITIS HAEMORRHAGIC [None]
